FAERS Safety Report 26071621 (Version 1)
Quarter: 2025Q4

REPORT INFORMATION
  Report Type: Report from Study
  Country: US (occurrence: US)
  Receive Date: 20251120
  Receipt Date: 20251120
  Transmission Date: 20260118
  Serious: Yes (Other)
  Sender: ABBVIE
  Company Number: US-ABBVIE-6556441

PATIENT
  Sex: Male

DRUGS (1)
  1. SKYRIZI [Suspect]
     Active Substance: RISANKIZUMAB-RZAA
     Indication: Psoriasis
     Route: 058
     Dates: start: 20200117

REACTIONS (5)
  - Thyroid cancer [Recovered/Resolved]
  - Cholelithiasis [Recovered/Resolved]
  - Arthralgia [Unknown]
  - Arthropathy [Unknown]
  - Musculoskeletal pain [Unknown]
